FAERS Safety Report 12118217 (Version 1)
Quarter: 2016Q1

REPORT INFORMATION
  Report Type: Spontaneous
  Country: JP (occurrence: JP)
  Receive Date: 20160226
  Receipt Date: 20160226
  Transmission Date: 20160526
  Serious: Yes (Hospitalization)
  Sender: FDA-Public Use
  Company Number: JP-TAKEDA-2016TJP003378

PATIENT
  Age: 64 Year
  Sex: Male

DRUGS (1)
  1. TAKEPRON CAPSULES 15 [Suspect]
     Active Substance: LANSOPRAZOLE
     Indication: PRODUCT USED FOR UNKNOWN INDICATION
     Dosage: UNK
     Route: 048
     Dates: start: 2014, end: 2015

REACTIONS (3)
  - Colitis microscopic [Recovering/Resolving]
  - Hypoalbuminaemia [Recovering/Resolving]
  - Protein-losing gastroenteropathy [Unknown]

NARRATIVE: CASE EVENT DATE: 201411
